FAERS Safety Report 23395849 (Version 1)
Quarter: 2024Q1

REPORT INFORMATION
  Report Type: Spontaneous
  Country: US (occurrence: US)
  Receive Date: 20240112
  Receipt Date: 20240112
  Transmission Date: 20240410
  Serious: Yes (Hospitalization, Other)
  Sender: FDA-Public Use
  Company Number: US-MACLEODS PHARMACEUTICALS US LTD-MAC2024045254

PATIENT

DRUGS (2)
  1. LEVOTHYROXINE [Interacting]
     Active Substance: LEVOTHYROXINE
     Indication: Thyroid hormone replacement therapy
     Dosage: 88 MICROGRAM, QD
     Route: 048
  2. RIFAMPIN [Interacting]
     Active Substance: RIFAMPIN
     Indication: Tuberculosis
     Dosage: UNK (TIME INTERVAL BETWEEN BEGINNING OF DRUG WAS 2 MONTHS)
     Route: 065

REACTIONS (2)
  - Hypothyroidism [Recovered/Resolved]
  - Drug interaction [Recovered/Resolved]
